FAERS Safety Report 6265840-5 (Version None)
Quarter: 2009Q3

REPORT INFORMATION
  Report Type: 
  Country: None (occurrence: None)
  Receive Date: 20090713
  Receipt Date: 20090703
  Transmission Date: 20100115
  Serious: Yes (Other)
  Sender: FDA-Public Use
  Company Number: B0582293A

PATIENT
  Sex: Female

DRUGS (3)
  1. IMIGRAN [Suspect]
     Dosage: 6MG AS REQUIRED
     Route: 058
     Dates: start: 20090501
  2. TOPAMAX [Concomitant]
     Indication: DRUG USE FOR UNKNOWN INDICATION
     Dosage: 100MG PER DAY
     Route: 065
  3. FLUOXETINE HCL [Concomitant]
     Indication: DRUG USE FOR UNKNOWN INDICATION
     Dosage: 40MG PER DAY
     Route: 065

REACTIONS (15)
  - ANXIETY [None]
  - CONDITION AGGRAVATED [None]
  - DEPRESSED LEVEL OF CONSCIOUSNESS [None]
  - DYSPNOEA [None]
  - FEELING COLD [None]
  - FEELING HOT [None]
  - FEELING OF RELAXATION [None]
  - HEADACHE [None]
  - HYPOAESTHESIA [None]
  - HYPOVENTILATION [None]
  - MIGRAINE [None]
  - MUSCLE TIGHTNESS [None]
  - PAIN [None]
  - TEARFULNESS [None]
  - TENSION HEADACHE [None]
